FAERS Safety Report 11966304 (Version 1)
Quarter: 2016Q1

REPORT INFORMATION
  Report Type: Spontaneous
  Country: DE (occurrence: DE)
  Receive Date: 20160127
  Receipt Date: 20160127
  Transmission Date: 20160526
  Serious: Yes (Hospitalization, Congenital Anomaly, Other)
  Sender: FDA-Public Use
  Company Number: DE-PFIZER INC-2016037454

PATIENT
  Sex: Male
  Weight: 1.47 kg

DRUGS (8)
  1. TRENTAL [Suspect]
     Active Substance: PENTOXIFYLLINE
     Indication: COAGULOPATHY
     Dosage: 400 MG, 2X/DAY, 5. - 12. GESTATIONAL WEEK
     Route: 064
  2. CLEXANE [Concomitant]
     Active Substance: ENOXAPARIN SODIUM
     Indication: COAGULOPATHY
     Dosage: 20 MG, 1X/DAY, 6. - 32.5. GESTATIONAL WEEK
     Route: 064
  3. EUTHYROX [Concomitant]
     Active Substance: LEVOTHYROXINE SODIUM
     Indication: HYPOTHYROIDISM
     Dosage: 50 UG, 1X/DAY, 0. - 32.5. GESTATIONAL WEEK
     Route: 064
     Dates: start: 20141023, end: 20150609
  4. ASPIRIN. [Concomitant]
     Active Substance: ASPIRIN
     Indication: COAGULOPATHY
     Dosage: 100 MG, 1X/DAY, 5. - 12. GESTATIONAL WEEK
     Route: 064
  5. PREDNISOLONE. [Concomitant]
     Active Substance: PREDNISOLONE
     Indication: COAGULOPATHY
     Dosage: 10 MG, 1X/DAY, 5. - 12. GESTATIONAL WEEK
     Route: 064
  6. VENLAFAXINE HCL [Suspect]
     Active Substance: VENLAFAXINE HYDROCHLORIDE
     Indication: DEPRESSION
     Dosage: 75 MG, 1X/DAY, 0. - 32.5. GESTATIONAL WEEK
     Route: 064
     Dates: start: 20141023, end: 20150609
  7. DIAZEPAM. [Concomitant]
     Active Substance: DIAZEPAM
     Indication: DEPRESSION
     Dosage: 3 TIMES IN TRIMESTER: 2ND + 3RD
     Route: 064
  8. FEMIBION SCHWANGERSCHAFT 1 [Concomitant]
     Indication: PROPHYLAXIS OF NEURAL TUBE DEFECT
     Dosage: 0.8 MG, 1X/DAY, 0. - 32.5. GESTATIONAL WEEK
     Route: 064
     Dates: start: 20141023, end: 20150609

REACTIONS (6)
  - Atrial septal defect [Not Recovered/Not Resolved]
  - Premature baby [Unknown]
  - Respiratory disorder neonatal [Recovered/Resolved]
  - Maternal exposure during pregnancy [Not Recovered/Not Resolved]
  - Infantile apnoea [Recovered/Resolved]
  - Bradycardia neonatal [Recovered/Resolved]

NARRATIVE: CASE EVENT DATE: 20150609
